FAERS Safety Report 13261563 (Version 3)
Quarter: 2017Q2

REPORT INFORMATION
  Report Type: Spontaneous
  Country: JP (occurrence: JP)
  Receive Date: 20170222
  Receipt Date: 20170612
  Transmission Date: 20170830
  Serious: Yes (Hospitalization, Other)
  Sender: FDA-Public Use
  Company Number: JP-BAXALTA-2017BXJ001342

PATIENT
  Age: 23 Year
  Sex: Male
  Weight: 80 kg

DRUGS (4)
  1. FEIBA [Suspect]
     Active Substance: ANTI-INHIBITOR COAGULANT COMPLEX
     Dosage: 50 IU/KG, 3X A WEEK
     Route: 042
     Dates: start: 201306, end: 201406
  2. FEIBA [Suspect]
     Active Substance: ANTI-INHIBITOR COAGULANT COMPLEX
     Indication: HAEMOPHILIA B WITH ANTI FACTOR IX
     Dosage: 6000-8000 IU, ON-DEMAND
     Route: 042
  3. FEIBA [Suspect]
     Active Substance: ANTI-INHIBITOR COAGULANT COMPLEX
     Dosage: 75 IU/KG, 3X A WEEK
     Route: 042
     Dates: start: 201406
  4. NOVOSEVEN [Concomitant]
     Active Substance: COAGULATION FACTOR VIIA RECOMBINANT HUMAN
     Indication: HAEMORRHAGE
     Dosage: 20 MG, ON-DEMAND

REACTIONS (4)
  - Haemorrhage [Unknown]
  - Muscle haemorrhage [Unknown]
  - Haemarthrosis [Unknown]
  - Compartment syndrome [Unknown]
